FAERS Safety Report 23969308 (Version 1)
Quarter: 2024Q2

REPORT INFORMATION
  Report Type: Report from Study
  Country: PR (occurrence: PR)
  Receive Date: 20240612
  Receipt Date: 20240612
  Transmission Date: 20240716
  Serious: Yes (Hospitalization)
  Sender: FDA-Public Use
  Company Number: PR-ABBVIE-5792824

PATIENT
  Sex: Female

DRUGS (2)
  1. RINVOQ [Suspect]
     Active Substance: UPADACITINIB
     Indication: Crohn^s disease
     Route: 048
     Dates: start: 202309, end: 202403
  2. PREDNISONE [Concomitant]
     Active Substance: PREDNISONE
     Indication: Gastrointestinal inflammation
     Dates: start: 202403

REACTIONS (7)
  - Gastrointestinal inflammation [Recovering/Resolving]
  - Drug ineffective [Recovering/Resolving]
  - Diarrhoea [Recovering/Resolving]
  - Abdominal pain [Recovering/Resolving]
  - Acne [Recovering/Resolving]
  - Pyrexia [Recovering/Resolving]
  - Inflammatory marker increased [Recovering/Resolving]

NARRATIVE: CASE EVENT DATE: 20230101
